FAERS Safety Report 8765925 (Version 1)
Quarter: 2012Q4

REPORT INFORMATION
  Report Type: 
  Country: US (occurrence: US)
  Receive Date: 20120904
  Receipt Date: 20120904
  Transmission Date: 20130627
  Serious: Yes (Other)
  Sender: FDA-Public Use
  Company Number: US-PFIZER INC-2012214436

PATIENT
  Age: 52 Year
  Sex: Female
  Weight: 65.76 kg

DRUGS (13)
  1. LYRICA [Suspect]
     Indication: FIBROMYALGIA
     Dosage: 75 mg, 2x/day
     Route: 048
     Dates: end: 2010
  2. LYRICA [Suspect]
     Dosage: 75 mg, 1x/day
     Route: 048
     Dates: start: 2010, end: 2010
  3. LYRICA [Suspect]
     Dosage: 75 mg, 2x/day
     Route: 048
     Dates: start: 2010
  4. HYDROCODONE [Concomitant]
     Dosage: UNK
  5. TOPIRAMATE [Concomitant]
     Indication: MIGRAINE
     Dosage: UNK
  6. PROVIGIL [Concomitant]
     Dosage: UNK
  7. PREDNISONE [Concomitant]
     Dosage: UNK
  8. COUMADIN [Concomitant]
     Dosage: UNK
  9. METHOTREXATE [Concomitant]
     Dosage: UNK
  10. VITAMIN D [Concomitant]
     Dosage: 50000 IU, UNK
  11. VITAMIN B12 [Concomitant]
     Dosage: UNK
  12. DEPLIN [Concomitant]
     Dosage: UNK
  13. FOLIC ACID [Concomitant]
     Dosage: UNK

REACTIONS (7)
  - Intracranial aneurysm [Unknown]
  - Post procedural swelling [Not Recovered/Not Resolved]
  - Post procedural complication [Unknown]
  - Migraine [Not Recovered/Not Resolved]
  - C-reactive protein increased [Unknown]
  - Headache [Unknown]
  - Incorrect storage of drug [Unknown]
